FAERS Safety Report 23657245 (Version 2)
Quarter: 2024Q1

REPORT INFORMATION
  Report Type: Spontaneous
  Country: US (occurrence: US)
  Receive Date: 20240321
  Receipt Date: 20240326
  Transmission Date: 20240409
  Serious: No
  Sender: FDA-Public Use
  Company Number: US-JNJFOC-20240327761

PATIENT
  Age: 93 Year
  Sex: Female

DRUGS (1)
  1. TYLENOL [Suspect]
     Active Substance: ACETAMINOPHEN
     Indication: Pain in extremity
     Route: 065
     Dates: start: 20240308

REACTIONS (3)
  - Incorrect dose administered [Unknown]
  - Expired product administered [Unknown]
  - Product label issue [Unknown]

NARRATIVE: CASE EVENT DATE: 20240308
